FAERS Safety Report 7640913-0 (Version None)
Quarter: 2011Q3

REPORT INFORMATION
  Report Type: 
  Country: None (occurrence: None)
  Receive Date: 20110728
  Receipt Date: 20110728
  Transmission Date: 20111222
  Serious: No
  Sender: FDA-Public Use
  Company Number: None

PATIENT
  Age: 51 Year
  Sex: Female
  Weight: 54.431 kg

DRUGS (1)
  1. LEVAQUIN [Suspect]
     Indication: SINUSITIS
     Dosage: 1 TABLET
     Dates: start: 20080908, end: 20080929

REACTIONS (10)
  - ASTHENIA [None]
  - COGNITIVE DISORDER [None]
  - MEMORY IMPAIRMENT [None]
  - BALANCE DISORDER [None]
  - DEPRESSION [None]
  - PARAESTHESIA [None]
  - HYPOAESTHESIA [None]
  - ANXIETY [None]
  - PAIN [None]
  - INSOMNIA [None]
